FAERS Safety Report 4287593-2 (Version None)
Quarter: 2004Q1

REPORT INFORMATION
  Report Type: 
  Country: None (occurrence: None)
  Receive Date: 20040205
  Receipt Date: 20040107
  Transmission Date: 20041129
  Serious: Yes (Hospitalization)
  Sender: FDA-Public Use
  Company Number: F01200301532

PATIENT
  Age: 70 Year
  Sex: Male

DRUGS (6)
  1. (OXALIPLATIN) - SOLUTION - 63 MG [Suspect]
     Indication: COLORECTAL CANCER
     Dosage: 63 MG 1/WEEK, INTRAVENOUS NOS
     Route: 042
     Dates: start: 20031219, end: 20031219
  2. (CAPECITABINE) - TABLET -2150 MG [Suspect]
     Dosage: 2150 MG 1/WEEK; ORAL
     Route: 048
     Dates: start: 20031219, end: 20031222
  3. LANSOPRAZOLE [Concomitant]
  4. DEXAMETHASONE [Concomitant]
  5. CO-DYDRAMOL [Concomitant]
  6. FLOWMAX (TAMSULOSIN HYDROCHLORIDE) [Concomitant]

REACTIONS (8)
  - BLOOD ALKALINE PHOSPHATASE INCREASED [None]
  - BLOOD BILIRUBIN INCREASED [None]
  - BLOOD CREATININE INCREASED [None]
  - CHILLS [None]
  - GAMMA-GLUTAMYLTRANSFERASE INCREASED [None]
  - HAEMOGLOBIN DECREASED [None]
  - HYPOTENSION [None]
  - LOWER RESPIRATORY TRACT INFECTION [None]
